FAERS Safety Report 6512364-3 (Version None)
Quarter: 2009Q4

REPORT INFORMATION
  Report Type: 
  Country: None (occurrence: None)
  Receive Date: 20091222
  Receipt Date: 20090805
  Transmission Date: 20100525
  Serious: No
  Sender: FDA-Public Use
  Company Number: US-ASTRAZENECA-2009UW19169

PATIENT
  Age: 72 Year
  Sex: Male
  Weight: 83.9 kg

DRUGS (4)
  1. CRESTOR [Suspect]
     Indication: HYPERCHOLESTEROLAEMIA
     Route: 048
     Dates: start: 20090101
  2. PREDNISONE [Concomitant]
     Indication: RHEUMATOID ARTHRITIS
  3. NAPROSYN [Concomitant]
     Indication: OSTEOARTHRITIS
  4. CARAC [Concomitant]
     Indication: SKIN LESION

REACTIONS (1)
  - SWEAT DISCOLOURATION [None]
